FAERS Safety Report 4318203-3 (Version None)
Quarter: 2004Q1

REPORT INFORMATION
  Report Type: 
  Country: None (occurrence: None)
  Receive Date: 20040315
  Receipt Date: 20040303
  Transmission Date: 20041129
  Serious: Yes (Death)
  Sender: FDA-Public Use
  Company Number: USA-2003-0006512

PATIENT
  Age: 46 Year
  Sex: Male
  Weight: 82.1 kg

DRUGS (7)
  1. OXYCONTIN [Suspect]
     Indication: PAIN
     Dosage: SEE IMAGE
     Route: 048
     Dates: start: 20010215, end: 20010201
  2. OXYCONTIN [Suspect]
     Indication: PAIN
     Dosage: SEE IMAGE
     Route: 048
     Dates: start: 20010313, end: 20010316
  3. CELEXA [Concomitant]
     Dosage: 40 MG
  4. SOMA [Suspect]
     Dosage: 350 MG
  5. MEPROBAMATE [Suspect]
  6. BUPROPION (AMFEBUTAMONE) [Concomitant]
  7. BIAXIN [Concomitant]

REACTIONS (10)
  - ACCIDENTAL OVERDOSE [None]
  - COMA [None]
  - DRUG TOXICITY [None]
  - HEPATOMEGALY [None]
  - PAIN [None]
  - PORTAL TRIADITIS [None]
  - POST PROCEDURAL PAIN [None]
  - POSTOPERATIVE INFECTION [None]
  - PULMONARY CONGESTION [None]
  - PULMONARY OEDEMA [None]
